FAERS Safety Report 9337455 (Version 6)
Quarter: 2014Q2

REPORT INFORMATION
  Report Type: Spontaneous
  Country: US (occurrence: US)
  Receive Date: 20130607
  Receipt Date: 20140508
  Transmission Date: 20141212
  Serious: Yes (Hospitalization, Other)
  Sender: FDA-Public Use
  Company Number: US-009507513-1305USA017848

PATIENT
  Sex: Female
  Weight: 72.56 kg

DRUGS (6)
  1. FOSAMAX [Suspect]
     Indication: OSTEOPOROSIS
     Dosage: 70 MG, QW
     Route: 048
     Dates: start: 200208, end: 200609
  2. FOSAMAX [Suspect]
     Dosage: 70 MG, QW
     Route: 048
     Dates: start: 200612, end: 2010
  3. FOSAMAX PLUS D [Suspect]
     Indication: OSTEOPOROSIS
     Dosage: 70 MG/2800 IU, QW
     Route: 048
     Dates: start: 200609, end: 200612
  4. ALENDRONATE SODIUM [Suspect]
     Indication: OSTEOPOROSIS
     Dosage: 70 MG, QW
     Dates: start: 200803, end: 201011
  5. VITAMINS (UNSPECIFIED) [Concomitant]
     Dosage: 1 QD
     Route: 048
     Dates: start: 1980
  6. CALCIUM (UNSPECIFIED) (+) VITAMIN D (UNSPECIFIED) [Concomitant]
     Dosage: CALCIUM 500 MG/VIT D 200U
     Route: 048
     Dates: start: 1980

REACTIONS (19)
  - Femur fracture [Recovered/Resolved with Sequelae]
  - Intramedullary rod insertion [Unknown]
  - Uterine cancer [Unknown]
  - Femur fracture [Unknown]
  - Anaemia [Recovered/Resolved]
  - Hip arthroplasty [Unknown]
  - Ankle arthroplasty [Unknown]
  - Limb asymmetry [Unknown]
  - Tendon operation [Unknown]
  - Osteopenia [Unknown]
  - Cataract [Unknown]
  - Hysterectomy [Unknown]
  - Osteoarthritis [Unknown]
  - Sciatica [Unknown]
  - Enthesopathy [Unknown]
  - Spinal osteoarthritis [Unknown]
  - Body height decreased [Unknown]
  - Arthralgia [Unknown]
  - Back pain [Unknown]
